FAERS Safety Report 19658806 (Version 1)
Quarter: 2021Q3

REPORT INFORMATION
  Report Type: Spontaneous
  Country: US (occurrence: US)
  Receive Date: 20210804
  Receipt Date: 20210804
  Transmission Date: 20211014
  Serious: Yes (Hospitalization, Other)
  Sender: FDA-Public Use
  Company Number: US-009507513-2107USA008413

PATIENT
  Sex: Male

DRUGS (4)
  1. KEYTRUDA [Suspect]
     Active Substance: PEMBROLIZUMAB
     Indication: BLADDER CANCER
     Dosage: 200 MILLIGRAM, Q3W
     Dates: start: 202002
  2. KEYTRUDA [Suspect]
     Active Substance: PEMBROLIZUMAB
     Dosage: 400 MILLIGRAM
     Dates: start: 202105, end: 202105
  3. INSULIN [Concomitant]
     Active Substance: INSULIN NOS
  4. METFORMIN [Concomitant]
     Active Substance: METFORMIN HYDROCHLORIDE

REACTIONS (22)
  - Fall [Unknown]
  - Mental status changes [Recovering/Resolving]
  - Dizziness [Unknown]
  - Sepsis [Unknown]
  - Ill-defined disorder [Unknown]
  - Myalgia [Unknown]
  - Hypersomnia [Not Recovered/Not Resolved]
  - Hypotension [Unknown]
  - Thyroid disorder [Unknown]
  - Anaemia [Unknown]
  - Decreased appetite [Unknown]
  - Pneumonia [Unknown]
  - Ischaemic stroke [Recovering/Resolving]
  - Urinary tract infection bacterial [Unknown]
  - Renal failure [Unknown]
  - Head injury [Unknown]
  - Nausea [Unknown]
  - Fatigue [Not Recovered/Not Resolved]
  - Cough [Unknown]
  - Scratch [Unknown]
  - Delusion [Unknown]
  - Diarrhoea [Unknown]

NARRATIVE: CASE EVENT DATE: 2021
